FAERS Safety Report 6804783-2 (Version None)
Quarter: 2010Q2

REPORT INFORMATION
  Report Type: 
  Country: None (occurrence: None)
  Receive Date: 20100628
  Receipt Date: 20100628
  Transmission Date: 20101027
  Serious: Yes (Other)
  Sender: FDA-Public Use
  Company Number: None

PATIENT
  Age: 34 Year
  Sex: Male
  Weight: 81.6475 kg

DRUGS (1)
  1. SMOKING EVERYWHERE E-CIGARETTES [Suspect]
     Dates: start: 20091201, end: 20100401

REACTIONS (6)
  - DYSPNOEA [None]
  - INSOMNIA [None]
  - PANIC REACTION [None]
  - PRURITUS [None]
  - TREMOR [None]
  - WITHDRAWAL SYNDROME [None]
